FAERS Safety Report 16643532 (Version 1)
Quarter: 2019Q3

REPORT INFORMATION
  Report Type: Spontaneous
  Country: US (occurrence: US)
  Receive Date: 20190729
  Receipt Date: 20190729
  Transmission Date: 20191004
  Serious: No
  Sender: FDA-Public Use
  Company Number: US-PRINSTON PHARMACEUTICAL INC.-2019PRN00471

PATIENT
  Age: 72 Year
  Sex: Female

DRUGS (7)
  1. CLONAZEPAM. [Suspect]
     Active Substance: CLONAZEPAM
     Indication: PRESSURE OF SPEECH
  2. BLOOD PRESSURE PILLS (UNSPECIFIED) [Concomitant]
  3. CLONAZEPAM. [Suspect]
     Active Substance: CLONAZEPAM
     Indication: ANXIETY
     Dosage: 0.5 MG, 1X/DAY EVERY MORNING
     Route: 048
     Dates: start: 2019
  4. CLONAZEPAM. [Suspect]
     Active Substance: CLONAZEPAM
     Indication: NERVOUSNESS
  5. HEART PILLS (UNSPECIFIED) [Concomitant]
  6. CLONAZEPAM. [Suspect]
     Active Substance: CLONAZEPAM
     Indication: LIP DISORDER
  7. CHOLESTEROL MEDICATION (UNSPECIFIED) [Concomitant]
     Active Substance: UNSPECIFIED INGREDIENT

REACTIONS (17)
  - Anger [Recovering/Resolving]
  - Decreased appetite [Not Recovered/Not Resolved]
  - Weight decreased [Not Recovered/Not Resolved]
  - Dizziness [Recovered/Resolved]
  - Irritability [Recovering/Resolving]
  - Drug withdrawal syndrome [Recovered/Resolved]
  - Feeling abnormal [Not Recovered/Not Resolved]
  - Diarrhoea [Recovered/Resolved]
  - Sleep disorder [Not Recovered/Not Resolved]
  - Therapeutic response shortened [Unknown]
  - Intentional product use issue [Not Recovered/Not Resolved]
  - Drug ineffective for unapproved indication [Not Recovered/Not Resolved]
  - Somnolence [Not Recovered/Not Resolved]
  - Product substitution issue [Not Recovered/Not Resolved]
  - Personality change [Recovering/Resolving]
  - Malaise [Not Recovered/Not Resolved]
  - Abdominal pain upper [Not Recovered/Not Resolved]

NARRATIVE: CASE EVENT DATE: 2019
